FAERS Safety Report 24783780 (Version 1)
Quarter: 2024Q4

REPORT INFORMATION
  Report Type: Spontaneous
  Country: FR (occurrence: FR)
  Receive Date: 20241227
  Receipt Date: 20241227
  Transmission Date: 20250114
  Serious: Yes (Life-Threatening, Other)
  Sender: ALEXION PHARMACEUTICALS
  Company Number: None

PATIENT
  Age: 80 Year
  Weight: 65 kg

DRUGS (4)
  1. TICAGRELOR [Suspect]
     Active Substance: TICAGRELOR
     Indication: Acute coronary syndrome
     Dosage: 1 MORNING, 1 EVENING
  2. TICAGRELOR [Suspect]
     Active Substance: TICAGRELOR
     Dosage: 1 MORNING, 1 EVENING
     Route: 048
  3. TICAGRELOR [Suspect]
     Active Substance: TICAGRELOR
     Dosage: 1 MORNING, 1 EVENING
  4. TICAGRELOR [Suspect]
     Active Substance: TICAGRELOR
     Dosage: 1 MORNING, 1 EVENING
     Route: 048

REACTIONS (1)
  - Drug reaction with eosinophilia and systemic symptoms [Recovered/Resolved]
